FAERS Safety Report 13942183 (Version 1)
Quarter: 2017Q3

REPORT INFORMATION
  Report Type: Spontaneous
  Country: US (occurrence: US)
  Receive Date: 20170907
  Receipt Date: 20170907
  Transmission Date: 20171127
  Serious: Yes (Other)
  Sender: FDA-Public Use
  Company Number: US-ELI_LILLY_AND_COMPANY-US201708012604

PATIENT
  Age: 62 Year
  Sex: Male

DRUGS (1)
  1. HUMALOG [Suspect]
     Active Substance: INSULIN LISPRO
     Indication: TYPE 1 DIABETES MELLITUS
     Dosage: 50 U, DAILY
     Route: 058

REACTIONS (9)
  - Diabetic retinopathy [Unknown]
  - Sleep apnoea syndrome [Unknown]
  - Diabetic neuropathy [Unknown]
  - Anxiety disorder [Unknown]
  - Hypoglycaemia [Unknown]
  - Cardiac disorder [Unknown]
  - Angiopathy [Unknown]
  - Depression [Unknown]
  - Loss of consciousness [Unknown]
